FAERS Safety Report 15979314 (Version 1)
Quarter: 2019Q1

REPORT INFORMATION
  Report Type: Spontaneous
  Country: US (occurrence: US)
  Receive Date: 20190216
  Receipt Date: 20190216
  Transmission Date: 20190418
  Serious: Yes (Other)
  Sender: FDA-Public Use
  Company Number: None

PATIENT
  Age: 32 Year
  Sex: Male
  Weight: 85.5 kg

DRUGS (1)
  1. CITALOPRAM 10 MG TABLET COMMONLY KNOWN AS CELEXA [Suspect]
     Active Substance: CITALOPRAM HYDROBROMIDE
     Indication: GENERALISED ANXIETY DISORDER
     Dosage: ?          QUANTITY:90 CAPSULE(S);?
     Route: 048

REACTIONS (10)
  - Irritability [None]
  - Mood swings [None]
  - Withdrawal syndrome [None]
  - Insomnia [None]
  - Decreased appetite [None]
  - Drug ineffective [None]
  - Product substitution issue [None]
  - Loss of libido [None]
  - Diarrhoea [None]
  - Headache [None]

NARRATIVE: CASE EVENT DATE: 20190208
